FAERS Safety Report 23104054 (Version 1)
Quarter: 2023Q4

REPORT INFORMATION
  Report Type: Spontaneous
  Country: US (occurrence: US)
  Receive Date: 20231025
  Receipt Date: 20231025
  Transmission Date: 20240110
  Serious: Yes (Other)
  Sender: FDA-Public Use
  Company Number: US-JNJFOC-20231038127

PATIENT
  Age: 53 Year
  Sex: Female

DRUGS (1)
  1. SPRAVATO [Suspect]
     Active Substance: ESKETAMINE
     Indication: Depression
     Dates: start: 20230920, end: 20230921

REACTIONS (2)
  - Oropharyngeal blistering [Recovered/Resolved]
  - Nasal mucosal blistering [Recovered/Resolved]

NARRATIVE: CASE EVENT DATE: 20230921
